FAERS Safety Report 24271972 (Version 1)
Quarter: 2024Q3

REPORT INFORMATION
  Report Type: Spontaneous
  Country: FR (occurrence: FR)
  Receive Date: 20240902
  Receipt Date: 20240902
  Transmission Date: 20241017
  Serious: Yes (Death, Hospitalization, Other)
  Sender: AUROBINDO
  Company Number: FR-AFSSAPS-AVBX2024000457

PATIENT
  Age: 41 Year
  Sex: Female

DRUGS (3)
  1. DIAZEPAM [Suspect]
     Active Substance: DIAZEPAM
     Indication: Product used for unknown indication
     Dosage: 10 MILLIGRAM (30 TABLET)
     Route: 065
     Dates: start: 20240720
  2. METHADONE HYDROCHLORIDE [Suspect]
     Active Substance: METHADONE HYDROCHLORIDE
     Indication: Drug withdrawal maintenance therapy
     Dosage: 560 MILLIGRAM
     Route: 065
     Dates: start: 2024
  3. OXAZEPAM [Suspect]
     Active Substance: OXAZEPAM
     Indication: Product used for unknown indication
     Dosage: 50 MILLIGRAM (20 TO 40 TABLETS (50 MG))
     Route: 065
     Dates: start: 20240720

REACTIONS (3)
  - Drug dependence [Fatal]
  - Respiratory distress [Recovered/Resolved]
  - Somnolence [Recovered/Resolved]

NARRATIVE: CASE EVENT DATE: 20240701
